FAERS Safety Report 5904817-3 (Version None)
Quarter: 2008Q4

REPORT INFORMATION
  Report Type: 
  Country: None (occurrence: None)
  Receive Date: 20081001
  Receipt Date: 20080918
  Transmission Date: 20090506
  Serious: Yes (Other)
  Sender: FDA-Public Use
  Company Number: JP-MERCK-0809USA04622

PATIENT
  Age: 8 Year
  Sex: Male

DRUGS (2)
  1. DACTINOMYCIN [Suspect]
     Indication: NEPHROBLASTOMA
     Route: 065
  2. VINCRISTINE SULFATE [Suspect]
     Route: 065

REACTIONS (1)
  - FOCAL NODULAR HYPERPLASIA [None]
